FAERS Safety Report 4870630-1 (Version None)
Quarter: 2005Q4

REPORT INFORMATION
  Report Type: 
  Country: None (occurrence: None)
  Receive Date: 20051228
  Receipt Date: 20051209
  Transmission Date: 20060501
  Serious: Yes (Other)
  Sender: FDA-Public Use
  Company Number: US200512001783

PATIENT
  Age: 87 Year
  Sex: Female

DRUGS (1)
  1. HUMALOG [Suspect]
     Dates: end: 19850101

REACTIONS (3)
  - BLINDNESS [None]
  - MACULAR DEGENERATION [None]
  - PHARMACEUTICAL PRODUCT COMPLAINT [None]
